FAERS Safety Report 10507827 (Version 1)
Quarter: 2014Q3

REPORT INFORMATION
  Report Type: Spontaneous
  Country: US (occurrence: None)
  Receive Date: 20140915
  Receipt Date: 20140915
  Transmission Date: 20150326
  Serious: Yes (Other)
  Sender: FDA-Public Use
  Company Number: 2013-US-001040

PATIENT
  Age: 67 Year
  Sex: Female

DRUGS (2)
  1. INFLUENZA VIRUS VACCINE, SWINE NOS [Suspect]
     Active Substance: INFLUENZA VIRUS VACCINE, SWINE
     Indication: IMMUNISATION
  2. XYREM [Suspect]
     Active Substance: SODIUM OXYBATE
     Indication: SLEEP DISORDER
     Route: 048
     Dates: start: 20050429, end: 2005

REACTIONS (12)
  - Hypersensitivity [None]
  - Insomnia [None]
  - Sleep apnoea syndrome [None]
  - Condition aggravated [None]
  - Intentional product misuse [None]
  - Nausea [None]
  - Vitamin D deficiency [None]
  - Off label use [None]
  - Malaise [None]
  - Obsessive-compulsive disorder [None]
  - Mental disorder [None]
  - Somnolence [None]

NARRATIVE: CASE EVENT DATE: 2013
